FAERS Safety Report 9214996 (Version 1)
Quarter: 2013Q2

REPORT INFORMATION
  Report Type: Report from Study
  Country: NZ (occurrence: NZ)
  Receive Date: 20130405
  Receipt Date: 20130405
  Transmission Date: 20140414
  Serious: Yes (Hospitalization)
  Sender: FDA-Public Use
  Company Number: NZ-AMGEN-US200915

PATIENT
  Age: 77 Year
  Sex: Male

DRUGS (4)
  1. DENOSUMAB [Suspect]
     Indication: PROSTATE CANCER
     Dosage: UNK BLINDED, QMO
     Route: 058
     Dates: start: 20061018
  2. ASPIRIN [Concomitant]
     Dosage: 150 MG, QD
  3. DIPYRIDAMOLE [Concomitant]
     Dosage: 150 MG, QD
  4. CALCIUM [Concomitant]
     Dosage: 500 MG, QD
     Dates: start: 20061018

REACTIONS (1)
  - Urinary tract obstruction [Recovered/Resolved]
